FAERS Safety Report 13480662 (Version 4)
Quarter: 2017Q2

REPORT INFORMATION
  Report Type: Report from Study
  Country: US (occurrence: US)
  Receive Date: 20170425
  Receipt Date: 20170531
  Transmission Date: 20170830
  Serious: Yes (Death, Hospitalization)
  Sender: FDA-Public Use
  Company Number: US-ACTELION-A-NJ2017-152824

PATIENT
  Age: 65 Year
  Sex: Female
  Weight: 54.42 kg

DRUGS (5)
  1. OPSUMIT [Suspect]
     Active Substance: MACITENTAN
     Indication: PULMONARY ARTERIAL HYPERTENSION
     Dosage: 10 MG, QD
     Route: 048
     Dates: start: 20150327
  2. VELETRI [Suspect]
     Active Substance: EPOPROSTENOL
     Indication: PULMONARY ARTERIAL HYPERTENSION
     Dosage: 18 NG/KG, PER MIN
     Route: 042
  3. ADEMPAS [Concomitant]
     Active Substance: RIOCIGUAT
  4. REMODULIN [Concomitant]
     Active Substance: TREPROSTINIL
     Dosage: UNK
     Dates: start: 20170106
  5. IMURAN [Concomitant]
     Active Substance: AZATHIOPRINE
     Indication: INTERSTITIAL LUNG DISEASE

REACTIONS (21)
  - Acute kidney injury [Fatal]
  - Chronic respiratory failure [Fatal]
  - Cardiogenic shock [Fatal]
  - Hypotension [Unknown]
  - Haemoglobin decreased [Unknown]
  - Vomiting [Unknown]
  - Oedema peripheral [Unknown]
  - Right ventricular failure [Fatal]
  - Aspiration [Fatal]
  - Diarrhoea [Unknown]
  - Hypoxia [Fatal]
  - Dysphagia [Unknown]
  - Nausea [Unknown]
  - Oxygen therapy [Unknown]
  - Urinary tract infection [Fatal]
  - Pneumonia [Unknown]
  - Antimicrobial susceptibility test resistant [Unknown]
  - Weight increased [Unknown]
  - Septic shock [Fatal]
  - Candida test positive [Unknown]
  - Oliguria [Unknown]

NARRATIVE: CASE EVENT DATE: 20170307
